FAERS Safety Report 23393388 (Version 4)
Quarter: 2025Q2

REPORT INFORMATION
  Report Type: Report from Study
  Country: US (occurrence: US)
  Receive Date: 20240111
  Receipt Date: 20250515
  Transmission Date: 20250717
  Serious: Yes (Hospitalization, Other)
  Sender: PFIZER
  Company Number: US-PFIZER INC-PV202400002839

PATIENT
  Age: 80 Year
  Sex: Male

DRUGS (5)
  1. VYNDAMAX [Suspect]
     Active Substance: TAFAMIDIS
     Indication: Amyloidosis
     Dosage: 61MG CAP, TAKE 1 CAPSULE BY MOUTH DAILY
     Route: 048
     Dates: start: 20231017
  2. LASIX [Concomitant]
     Active Substance: FUROSEMIDE
  3. LOSARTAN POTASSIUM [Concomitant]
     Active Substance: LOSARTAN POTASSIUM
  4. PRADAXA [Concomitant]
     Active Substance: DABIGATRAN ETEXILATE MESYLATE
  5. WAINUA [Concomitant]
     Active Substance: EPLONTERSEN

REACTIONS (4)
  - Urinary retention [Unknown]
  - Fluid retention [Unknown]
  - Infection [Unknown]
  - Prostatic artery embolisation [Recovered/Resolved]

NARRATIVE: CASE EVENT DATE: 20240501
